FAERS Safety Report 8836816 (Version 1)
Quarter: 2012Q4

REPORT INFORMATION
  Report Type: Spontaneous
  Country: US (occurrence: None)
  Receive Date: 20121010
  Receipt Date: 20121010
  Transmission Date: 20130627
  Serious: Yes (Hospitalization)
  Sender: FDA-Public Use
  Company Number: 2012GMK003754

PATIENT
  Age: 48 Year
  Sex: Male
  Weight: 93.4 kg

DRUGS (7)
  1. UNSPECIFIED INGREDIENT [Suspect]
     Dosage: blinded, Information withheld.
     Dates: start: 20120828
  2. LISINOPRIL (LISINOPRIL) [Concomitant]
  3. FUROSEMIDE (FUROSEMIDE) [Concomitant]
  4. FOLIC ACID (FOLIC ACID) [Concomitant]
  5. SPIRONOLACTONE (SPIRONOLACTONE) [Concomitant]
  6. ISOSORBIDE (ISOSORBIDE) [Concomitant]
  7. PLAVIX (CLOPIDOGREL BISULFATE) [Concomitant]

REACTIONS (1)
  - Cardiac failure congestive [None]
